FAERS Safety Report 8237740-2 (Version None)
Quarter: 2012Q1

REPORT INFORMATION
  Report Type: 
  Country: None (occurrence: None)
  Receive Date: 20120327
  Receipt Date: 20120305
  Transmission Date: 20120608
  Serious: No
  Sender: FDA-Public Use
  Company Number: US-ROXANE LABORATORIES, INC.-2012-RO-00788RO

PATIENT
  Age: 62 Year
  Sex: Female
  Weight: 61 kg

DRUGS (5)
  1. VENLAFAXINE HCL [Concomitant]
     Indication: DEPRESSION
     Dates: start: 20110101, end: 20110101
  2. UNSPECIFIED PAIN MEDICATION [Concomitant]
     Indication: PAIN
  3. ALPRAZOLAM [Concomitant]
     Indication: PANIC ATTACK
     Dosage: 8 MG
  4. EFFEXOR XR [Concomitant]
     Indication: DEPRESSION
     Dosage: 150 MG
  5. CODEINE SUL TAB [Suspect]
     Indication: PAIN

REACTIONS (1)
  - AGITATION [None]
